FAERS Safety Report 18623347 (Version 1)
Quarter: 2020Q4

REPORT INFORMATION
  Report Type: Spontaneous
  Country: US (occurrence: US)
  Receive Date: 20201215
  Receipt Date: 20201215
  Transmission Date: 20210114
  Serious: Yes (Death)
  Sender: FDA-Public Use
  Company Number: None

PATIENT
  Sex: Female

DRUGS (12)
  1. ATOVASTATIN [Concomitant]
     Active Substance: ATORVASTATIN
  2. METOPROL SUC [Concomitant]
  3. PPERFOROMIST [Concomitant]
  4. PREDNISONE. [Concomitant]
     Active Substance: PREDNISONE
  5. CLOPIDOGREL [Concomitant]
     Active Substance: CLOPIDOGREL BISULFATE
  6. LOSARTAN. [Concomitant]
     Active Substance: LOSARTAN
  7. ACTEMRA ACTPEN [Suspect]
     Active Substance: TOCILIZUMAB
     Indication: GIANT CELL ARTERITIS
     Route: 058
     Dates: start: 20200917
  8. FOLIC ACID. [Concomitant]
     Active Substance: FOLIC ACID
  9. ALBUTEROL. [Concomitant]
     Active Substance: ALBUTEROL
  10. BUDESONIDE. [Concomitant]
     Active Substance: BUDESONIDE
  11. INCRUSE ELLIPTA [Concomitant]
     Active Substance: UMECLIDINIUM BROMIDE
  12. INPRATROPIUM [Concomitant]

REACTIONS (1)
  - Death [None]
